FAERS Safety Report 9257260 (Version 1)
Quarter: 2013Q1

REPORT INFORMATION
  Report Type: Spontaneous
  Country: US (occurrence: None)
  Receive Date: 20121212
  Receipt Date: 20121212
  Transmission Date: 20140127
  Serious: No
  Sender: FDA-Public Use
  Company Number: 1210USA002306

PATIENT
  Age: 58 Year
  Sex: Female

DRUGS (3)
  1. REBETOL [Suspect]
     Indication: HEPATITIS C
     Dosage: UNK
     Dates: start: 20120418, end: 20120926
  2. VICTRELIS [Suspect]
     Indication: HEPATITIS C
     Dosage: UNK
     Dates: start: 20120515, end: 20120926
  3. PEGASYS (PEGINTERFERON ALFA-2B) [Concomitant]

REACTIONS (2)
  - Malaise [None]
  - Abdominal pain [None]
